FAERS Safety Report 15016493 (Version 2)
Quarter: 2018Q2

REPORT INFORMATION
  Report Type: Report from Study
  Country: TW (occurrence: TW)
  Receive Date: 20180615
  Receipt Date: 20180627
  Transmission Date: 20180711
  Serious: Yes (Hospitalization)
  Sender: FDA-Public Use
  Company Number: TW-JNJFOC-20180609955

PATIENT
  Age: 64 Year
  Sex: Female
  Weight: 54.5 kg

DRUGS (1)
  1. SIMPONI [Suspect]
     Active Substance: GOLIMUMAB
     Indication: ANKYLOSING SPONDYLITIS
     Route: 058
     Dates: start: 20180517

REACTIONS (4)
  - Pulmonary tuberculosis [Not Recovered/Not Resolved]
  - Respiratory failure [Unknown]
  - Pneumonia [Unknown]
  - Lung abscess [Unknown]

NARRATIVE: CASE EVENT DATE: 20180605
